FAERS Safety Report 14534864 (Version 3)
Quarter: 2018Q1

REPORT INFORMATION
  Report Type: Spontaneous
  Country: US (occurrence: US)
  Receive Date: 20180215
  Receipt Date: 20180329
  Transmission Date: 20180509
  Serious: Yes (Other)
  Sender: FDA-Public Use
  Company Number: US-JNJFOC-20180218657

PATIENT
  Age: 52 Year
  Sex: Female

DRUGS (1)
  1. INVOKANA [Suspect]
     Active Substance: CANAGLIFLOZIN
     Indication: TYPE 2 DIABETES MELLITUS
     Route: 048
     Dates: start: 201504

REACTIONS (4)
  - Osteomyelitis [Recovering/Resolving]
  - Skin ulcer [Recovering/Resolving]
  - Toe amputation [Unknown]
  - Diabetic gangrene [Recovering/Resolving]

NARRATIVE: CASE EVENT DATE: 201504
